FAERS Safety Report 26192127 (Version 1)
Quarter: 2025Q4

REPORT INFORMATION
  Report Type: Report from Study
  Country: TH (occurrence: TH)
  Receive Date: 20251223
  Receipt Date: 20251223
  Transmission Date: 20260117
  Serious: Yes (Death, Other)
  Sender: PFIZER
  Company Number: TH-TAKEDA-2025TUS114968

PATIENT
  Age: 75 Year
  Sex: Female

DRUGS (1)
  1. ADCETRIS [Suspect]
     Active Substance: BRENTUXIMAB VEDOTIN
     Indication: Hodgkin^s disease refractory
     Dosage: 65 MILLIGRAM, Q3WEEKS
     Route: 042
     Dates: start: 20251008

REACTIONS (1)
  - Death [Fatal]

NARRATIVE: CASE EVENT DATE: 20251211
